FAERS Safety Report 4315641-X (Version None)
Quarter: 2004Q1

REPORT INFORMATION
  Report Type: 
  Country: None (occurrence: None)
  Receive Date: 20040311
  Receipt Date: 20040304
  Transmission Date: 20041129
  Serious: Yes (Hospitalization)
  Sender: FDA-Public Use
  Company Number: DE-GLAXOSMITHKLINE-D0043299A

PATIENT
  Age: 22 Year
  Sex: Female

DRUGS (6)
  1. LAMICTAL [Suspect]
     Route: 048
     Dates: start: 20030925, end: 20031021
  2. FINLEPSIN [Suspect]
     Route: 048
     Dates: start: 20031011, end: 20031021
  3. FAUSTAN [Concomitant]
     Route: 048
     Dates: start: 20031007, end: 20031023
  4. KALINOR [Concomitant]
     Dosage: 1TAB PER DAY
     Route: 048
     Dates: start: 20031013, end: 20031021
  5. GABAPENTIN [Concomitant]
     Route: 065
  6. CLOBAZAM [Concomitant]
     Route: 065

REACTIONS (6)
  - DERMATITIS ALLERGIC [None]
  - DRUG INTERACTION [None]
  - NEUTROPENIA [None]
  - PNEUMONIA [None]
  - PYREXIA [None]
  - THROMBOCYTOPENIA [None]
